FAERS Safety Report 9815573 (Version 2)
Quarter: 2014Q1

REPORT INFORMATION
  Report Type: Report from Study
  Country: US (occurrence: US)
  Receive Date: 20140114
  Receipt Date: 20140114
  Transmission Date: 20141002
  Serious: Yes (Other)
  Sender: FDA-Public Use
  Company Number: US-ROCHE-1038822

PATIENT
  Age: 56 Year
  Sex: Male
  Weight: 69.1 kg

DRUGS (5)
  1. VISMODEGIB [Suspect]
     Indication: SMALL CELL LUNG CANCER
     Dosage: LAST DOSE PRIOR TO SAE ON 29/MAR/2010. TOTAL DOSE ADMINISTERED IN THE COURSE PRIOR TO SAE: 2100MG.
     Route: 048
     Dates: start: 20100309
  2. CISPLATIN [Suspect]
     Indication: SMALL CELL LUNG CANCER
     Dosage: LAST DOSE PRIOR TO SAE: 09/MAR/2010. TOTAL DOSE ADMINISTERED IN THE COURSE PRIOR TO SAE: 135MG
     Route: 042
     Dates: start: 20100309
  3. ETOPOSIDE [Suspect]
     Indication: SMALL CELL LUNG CANCER
     Dosage: LAST DOSE PRIOR TO SAE: 11/MAR/2010. TOTAL DOSE ADMINISTERED IN THE COURSE PRIOR TO SAE: 540MG
     Route: 042
     Dates: start: 20100309
  4. WARFARIN [Suspect]
     Indication: PRODUCT USED FOR UNKNOWN INDICATION
     Route: 065
  5. CIPROFLOXACIN [Suspect]
     Indication: PRODUCT USED FOR UNKNOWN INDICATION
     Route: 065

REACTIONS (4)
  - Febrile neutropenia [Recovered/Resolved]
  - Neutrophil count decreased [Recovered/Resolved]
  - White blood cell count decreased [Recovered/Resolved]
  - International normalised ratio increased [Unknown]
